FAERS Safety Report 21435328 (Version 1)
Quarter: 2022Q4

REPORT INFORMATION
  Report Type: Report from Study
  Country: US (occurrence: US)
  Receive Date: 20221010
  Receipt Date: 20221010
  Transmission Date: 20230113
  Serious: Yes (Hospitalization, Other)
  Sender: FDA-Public Use
  Company Number: US-GILEAD-2022-0600441

PATIENT
  Sex: Male

DRUGS (21)
  1. AZTREONAM LYSINE [Suspect]
     Active Substance: AZTREONAM LYSINE
     Indication: Cystic fibrosis
     Dosage: INHALE 1 ML (75 MG TOTAL) VIA ALTERA NEBULIZER EVERY 8 HOURS FOR 28 DAYS ON AND 28 DAYS OFF
     Route: 055
  2. TOBRAMYCIN [Concomitant]
     Active Substance: TOBRAMYCIN
  3. PULMOZYME [Concomitant]
     Active Substance: DORNASE ALFA
  4. HYDROCORTISONE [Concomitant]
     Active Substance: HYDROCORTISONE
  5. SERTRALINE HYDROCHLORIDE [Concomitant]
     Active Substance: SERTRALINE HYDROCHLORIDE
  6. DEXCOM [Concomitant]
  7. DILAUDID [Concomitant]
     Active Substance: HYDROMORPHONE HYDROCHLORIDE
  8. PANCREAZE [Concomitant]
     Active Substance: PANCRELIPASE AMYLASE\PANCRELIPASE LIPASE\PANCRELIPASE PROTEASE
  9. XHANCE [Concomitant]
     Active Substance: FLUTICASONE PROPIONATE
  10. Nutren [Concomitant]
  11. RELIZORB [Concomitant]
  12. HUMALOG [Concomitant]
     Active Substance: INSULIN LISPRO
  13. LEVEMIR [Concomitant]
     Active Substance: INSULIN DETEMIR
  14. NEXIUM [Concomitant]
     Active Substance: ESOMEPRAZOLE MAGNESIUM
  15. VITAMIN A [Concomitant]
     Active Substance: VITAMIN A
  16. GABAPENTIN [Concomitant]
     Active Substance: GABAPENTIN
  17. VITAMINS [Concomitant]
     Active Substance: VITAMINS
  18. PHENERGAN [Concomitant]
     Active Substance: PROMETHAZINE HYDROCHLORIDE
  19. VITAMIN D [Concomitant]
     Active Substance: VITAMIN D NOS
  20. AZITHROMYCIN [Concomitant]
     Active Substance: AZITHROMYCIN
  21. SODIUM CHLORIDE [Concomitant]
     Active Substance: SODIUM CHLORIDE

REACTIONS (1)
  - Gastrointestinal disorder [Not Recovered/Not Resolved]
